FAERS Safety Report 21736586 (Version 1)
Quarter: 2022Q4

REPORT INFORMATION
  Report Type: Spontaneous
  Country: DE (occurrence: None)
  Receive Date: 20221216
  Receipt Date: 20221216
  Transmission Date: 20230112
  Serious: Yes (Other)
  Sender: FDA-Public Use
  Company Number: DE-ROCHE-3243010

PATIENT
  Sex: Male

DRUGS (15)
  1. RITUXIMAB [Suspect]
     Active Substance: RITUXIMAB
     Indication: Diffuse large B-cell lymphoma
     Dosage: R-CHOP
     Route: 065
     Dates: start: 20210901, end: 20220101
  2. RITUXIMAB [Suspect]
     Active Substance: RITUXIMAB
     Dosage: R-GEMOX
     Route: 065
     Dates: start: 20220201, end: 20220301
  3. RITUXIMAB [Suspect]
     Active Substance: RITUXIMAB
     Dosage: POLA-BR
     Route: 065
     Dates: start: 20220501, end: 20220531
  4. RITUXIMAB [Suspect]
     Active Substance: RITUXIMAB
     Dosage: RITUXIMAB, CYTARABIN, MITOXANTRONE
     Route: 065
     Dates: start: 20220601, end: 20220630
  5. RITUXIMAB [Suspect]
     Active Substance: RITUXIMAB
     Dosage: RITUXIMAB, LENALIDOMIDE, DEXAMETHASONE
     Route: 065
     Dates: start: 20220701, end: 20220710
  6. POLATUZUMAB VEDOTIN [Suspect]
     Active Substance: POLATUZUMAB VEDOTIN
     Indication: Diffuse large B-cell lymphoma
     Dosage: POLA-BR
     Route: 065
     Dates: start: 20220501, end: 20220531
  7. CYCLOPHOSPHAMIDE\DOXORUBICIN\PREDNISONE\VINCRISTINE [Suspect]
     Active Substance: CYCLOPHOSPHAMIDE\DOXORUBICIN\PREDNISONE\VINCRISTINE
     Indication: Diffuse large B-cell lymphoma
     Dosage: R-CHOP
     Route: 065
     Dates: start: 20210901, end: 20220101
  8. GEMCITABINE HYDROCHLORIDE\OXALIPLATIN [Suspect]
     Active Substance: GEMCITABINE HYDROCHLORIDE\OXALIPLATIN
     Indication: Diffuse large B-cell lymphoma
     Dosage: R-GEMOX
     Route: 065
     Dates: start: 20220201, end: 20220301
  9. BENDAMUSTINE [Suspect]
     Active Substance: BENDAMUSTINE
     Indication: Diffuse large B-cell lymphoma
     Dosage: POLA-BR
     Route: 065
     Dates: start: 20220501, end: 20220531
  10. CYTARABINE [Suspect]
     Active Substance: CYTARABINE
     Indication: Diffuse large B-cell lymphoma
     Dosage: RITUXIMAB, CYTARABIN, MITOXANTRONE
     Route: 065
     Dates: start: 20220601, end: 20220630
  11. MITOXANTRONE [Suspect]
     Active Substance: MITOXANTRONE HYDROCHLORIDE
     Indication: Diffuse large B-cell lymphoma
     Dosage: RITUXIMAB, CYTARABIN, MITOXANTRONE
     Route: 065
     Dates: start: 20220601, end: 20220630
  12. LENALIDOMIDE [Suspect]
     Active Substance: LENALIDOMIDE
     Indication: Diffuse large B-cell lymphoma
     Dosage: RITUXIMAB, LENALIDOMIDE, DEXAMETHASONE
     Route: 065
     Dates: start: 20220701, end: 20220710
  13. LENALIDOMIDE [Suspect]
     Active Substance: LENALIDOMIDE
     Dosage: TAFASITAMAB, LENALIDOMIDE
     Route: 065
     Dates: start: 20220830, end: 20220930
  14. DEXAMETHASONE [Suspect]
     Active Substance: DEXAMETHASONE
     Indication: Diffuse large B-cell lymphoma
     Dosage: RITUXIMAB, LENALIDOMIDE, DEXAMETHASONE
     Route: 065
     Dates: start: 20220701, end: 20220710
  15. TAFASITAMAB-CXIX [Suspect]
     Active Substance: TAFASITAMAB-CXIX
     Indication: Diffuse large B-cell lymphoma
     Dosage: TAFASITAMAB, LENALIDOMIDE
     Route: 065
     Dates: start: 20220830, end: 20220930

REACTIONS (1)
  - Lymphoma [Not Recovered/Not Resolved]
